FAERS Safety Report 9922516 (Version 2)
Quarter: 2014Q2

REPORT INFORMATION
  Report Type: Spontaneous
  Country: US (occurrence: US)
  Receive Date: 20140225
  Receipt Date: 20140528
  Transmission Date: 20141212
  Serious: No
  Sender: FDA-Public Use
  Company Number: US-UCBSA-112975

PATIENT
  Sex: Male
  Weight: 73 kg

DRUGS (1)
  1. KEPPRA [Suspect]
     Indication: CONVULSION
     Route: 048

REACTIONS (1)
  - Platelet count decreased [Not Recovered/Not Resolved]
